FAERS Safety Report 9393193 (Version 1)
Quarter: 2013Q3

REPORT INFORMATION
  Report Type: Spontaneous
  Country: FR (occurrence: FR)
  Receive Date: 20130710
  Receipt Date: 20130710
  Transmission Date: 20140515
  Serious: Yes (Hospitalization)
  Sender: FDA-Public Use
  Company Number: FR-009507513-1307FRA000949

PATIENT
  Age: 71 Year
  Sex: Female

DRUGS (1)
  1. FOSAVANCE [Suspect]
     Indication: OSTEOPOROSIS
     Dosage: 1 DF, QW
     Route: 048
     Dates: start: 20090724, end: 20090731

REACTIONS (2)
  - Tremor [Not Recovered/Not Resolved]
  - Extrapyramidal disorder [Not Recovered/Not Resolved]
